FAERS Safety Report 7999629-3 (Version None)
Quarter: 2011Q4

REPORT INFORMATION
  Report Type: 
  Country: None (occurrence: None)
  Receive Date: 20111221
  Receipt Date: 20111212
  Transmission Date: 20120403
  Serious: Yes (Hospitalization)
  Sender: FDA-Public Use
  Company Number: FR-ASTRAZENECA-2011SE69246

PATIENT
  Age: 26499 Day
  Sex: Male
  Weight: 75 kg

DRUGS (8)
  1. CRESTOR [Suspect]
     Indication: DYSLIPIDAEMIA
     Route: 048
     Dates: start: 20050101
  2. CRESTOR [Suspect]
     Route: 048
     Dates: start: 20110826, end: 20110927
  3. PLAVIX [Concomitant]
     Indication: ARTERITIS
     Route: 048
  4. OLMESARTAN MEDOXOMIL [Concomitant]
     Indication: HYPERTENSION
     Route: 048
  5. PIASCLEDINE [Concomitant]
     Route: 048
  6. CRESTOR [Suspect]
     Route: 048
  7. NEBIVOLOL HCL [Concomitant]
     Route: 048
  8. ACETAMINOPHEN [Concomitant]
     Route: 048

REACTIONS (2)
  - FEMORAL ARTERIAL STENOSIS [None]
  - DRUG PRESCRIBING ERROR [None]
